FAERS Safety Report 20603510 (Version 2)
Quarter: 2022Q2

REPORT INFORMATION
  Report Type: Spontaneous
  Country: US (occurrence: US)
  Receive Date: 20220316
  Receipt Date: 20220418
  Transmission Date: 20220720
  Serious: No
  Sender: FDA-Public Use
  Company Number: US-PFIZER INC-202200286369

PATIENT

DRUGS (3)
  1. SOMATROPIN [Suspect]
     Active Substance: SOMATROPIN
     Indication: Hypopituitarism
     Dosage: UNK
  2. SOMATROPIN [Suspect]
     Active Substance: SOMATROPIN
     Indication: Endocrine neoplasm
  3. SOMATROPIN [Suspect]
     Active Substance: SOMATROPIN
     Indication: Nervous system neoplasm

REACTIONS (2)
  - Off label use [Unknown]
  - Device mechanical issue [Unknown]
